FAERS Safety Report 5476138-7 (Version None)
Quarter: 2007Q4

REPORT INFORMATION
  Report Type: 
  Country: None (occurrence: None)
  Receive Date: 20071003
  Receipt Date: 20070926
  Transmission Date: 20080405
  Serious: Yes (Other)
  Sender: FDA-Public Use
  Company Number: US-JNJFOC-20071000473

PATIENT
  Age: 50 Year
  Sex: Male

DRUGS (5)
  1. FENTANYL [Suspect]
     Indication: DRUG USE FOR UNKNOWN INDICATION
     Route: 065
  2. VALIUM [Suspect]
     Indication: DRUG USE FOR UNKNOWN INDICATION
  3. ANTIDEPRESSANTS [Suspect]
     Indication: DRUG USE FOR UNKNOWN INDICATION
  4. PERCOCET [Suspect]
     Indication: DRUG USE FOR UNKNOWN INDICATION
  5. AMPHETAMINE [Suspect]
     Indication: DRUG USE FOR UNKNOWN INDICATION

REACTIONS (3)
  - DRUG DEPENDENCE [None]
  - HALLUCINATION [None]
  - PSYCHOTIC DISORDER [None]
